FAERS Safety Report 19890100 (Version 1)
Quarter: 2021Q3

REPORT INFORMATION
  Report Type: Spontaneous
  Country: US (occurrence: US)
  Receive Date: 20210924
  Receipt Date: 20210924
  Transmission Date: 20211014
  Serious: No
  Sender: FDA-Public Use
  Company Number: None

PATIENT

DRUGS (2)
  1. DEXTROSE, UNSPECIFIED FORM. [Suspect]
     Active Substance: DEXTROSE, UNSPECIFIED FORM
  2. 3% SODIUM CHLORIDE [Suspect]
     Active Substance: SODIUM CHLORIDE

REACTIONS (5)
  - Transcription medication error [None]
  - Incorrect dose administered [None]
  - Product dispensing error [None]
  - Product prescribing error [None]
  - Blood sodium decreased [None]
